FAERS Safety Report 6037784-5 (Version None)
Quarter: 2009Q1

REPORT INFORMATION
  Report Type: 
  Country: None (occurrence: None)
  Receive Date: 20090114
  Receipt Date: 20090102
  Transmission Date: 20090719
  Serious: Yes (Other)
  Sender: FDA-Public Use
  Company Number: 2009S1000098

PATIENT
  Age: 57 Year
  Sex: Male

DRUGS (4)
  1. MINAX (METOPROLOL TARTRATE) (50 MG) [Suspect]
     Indication: ATRIAL FIBRILLATION
     Dosage: 25 MG;TWICE A DAY; ORAL; 12.5 MG;TWICE A DAY; ORAL
     Route: 048
     Dates: start: 20080801, end: 20081104
  2. MINAX (METOPROLOL TARTRATE) (50 MG) [Suspect]
     Indication: ATRIAL FIBRILLATION
     Dosage: 25 MG;TWICE A DAY; ORAL; 12.5 MG;TWICE A DAY; ORAL
     Route: 048
     Dates: start: 20081209
  3. ASPIRIN [Concomitant]
  4. ARNICA MONTANA [Concomitant]

REACTIONS (5)
  - DEPRESSION [None]
  - INSOMNIA [None]
  - NERVOUSNESS [None]
  - TACHYPHRENIA [None]
  - THERAPY CESSATION [None]
